FAERS Safety Report 20415014 (Version 2)
Quarter: 2022Q2

REPORT INFORMATION
  Report Type: Spontaneous
  Country: CA (occurrence: CA)
  Receive Date: 20220202
  Receipt Date: 20220601
  Transmission Date: 20220721
  Serious: Yes (Hospitalization, Other)
  Sender: FDA-Public Use
  Company Number: CA-AUROBINDO-AUR-APL-2022-002553

PATIENT
  Age: 46 Year
  Sex: Female

DRUGS (14)
  1. MONTELUKAST [Suspect]
     Active Substance: MONTELUKAST SODIUM
     Indication: Product used for unknown indication
     Dosage: 10.0 MILLIGRAM, ONCE A DAY
     Route: 065
  2. CLARITIN [Suspect]
     Active Substance: LORATADINE
     Indication: Chronic spontaneous urticaria
     Dosage: 4.0 DOSAGE FORM, ONCE A DAY
     Route: 048
  3. CLARITIN [Suspect]
     Active Substance: LORATADINE
     Dosage: 1 DOSAGE FORM, ONCE A DAY
     Route: 048
  4. BILASTINE [Suspect]
     Active Substance: BILASTINE
     Indication: Chronic spontaneous urticaria
     Dosage: 1 DOSAGE FORM, ONCE A DAY
     Route: 048
  5. BILASTINE [Suspect]
     Active Substance: BILASTINE
     Dosage: 2 MILLIGRAM, ONCE A DAY
     Route: 065
  6. CETIRIZINE [Suspect]
     Active Substance: CETIRIZINE HYDROCHLORIDE
     Indication: Product used for unknown indication
     Dosage: 10.0 MILLIGRAM, ONCE A DAY
     Route: 065
  7. HYDROXYZINE [Suspect]
     Active Substance: HYDROXYZINE HYDROCHLORIDE
     Indication: Product used for unknown indication
     Dosage: 75 MILLIGRAM, ONCE A DAY
     Route: 065
  8. XOLAIR [Suspect]
     Active Substance: OMALIZUMAB
     Indication: Chronic spontaneous urticaria
     Dosage: 300.0 MILLIGRAM
     Route: 065
  9. XOLAIR [Suspect]
     Active Substance: OMALIZUMAB
     Indication: Urticaria
     Dosage: 450.0 MILLIGRAM
     Route: 058
  10. PREDNISONE [Suspect]
     Active Substance: PREDNISONE
     Indication: Chronic spontaneous urticaria
     Dosage: UNK
     Route: 048
  11. RANITIDINE [Suspect]
     Active Substance: RANITIDINE
     Indication: Product used for unknown indication
     Dosage: 300 MILLIGRAM, ONCE A DAY
     Route: 065
  12. RUPATADINE FUMARATE [Suspect]
     Active Substance: RUPATADINE FUMARATE
     Indication: Chronic spontaneous urticaria
     Dosage: 2 DOSAGE FORM, ONCE A DAY
     Route: 048
  13. CYCLOSPORINE [Concomitant]
     Active Substance: CYCLOSPORINE
     Indication: Chronic spontaneous urticaria
     Dosage: 1.0 MILLIGRAM
     Route: 048
  14. ATARAX [Concomitant]
     Active Substance: HYDROXYZINE HYDROCHLORIDE
     Indication: Chronic spontaneous urticaria
     Dosage: 1.0 DOSAGE FORM
     Route: 065

REACTIONS (24)
  - Abdominal pain [Not Recovered/Not Resolved]
  - Adverse drug reaction [Not Recovered/Not Resolved]
  - Angioedema [Not Recovered/Not Resolved]
  - Arthralgia [Not Recovered/Not Resolved]
  - Drug intolerance [Not Recovered/Not Resolved]
  - Emotional disorder [Not Recovered/Not Resolved]
  - Fatigue [Not Recovered/Not Resolved]
  - Frustration tolerance decreased [Not Recovered/Not Resolved]
  - Headache [Not Recovered/Not Resolved]
  - Heart rate increased [Not Recovered/Not Resolved]
  - Insomnia [Not Recovered/Not Resolved]
  - Lacrimation increased [Not Recovered/Not Resolved]
  - Lip swelling [Not Recovered/Not Resolved]
  - Mouth ulceration [Not Recovered/Not Resolved]
  - Pain in extremity [Not Recovered/Not Resolved]
  - Pruritus [Not Recovered/Not Resolved]
  - Sedation [Not Recovered/Not Resolved]
  - Swelling face [Not Recovered/Not Resolved]
  - Swollen tongue [Not Recovered/Not Resolved]
  - Urticaria [Not Recovered/Not Resolved]
  - Incorrect dose administered [Not Recovered/Not Resolved]
  - Drug ineffective [Not Recovered/Not Resolved]
  - Gait disturbance [Not Recovered/Not Resolved]
  - Grip strength decreased [Not Recovered/Not Resolved]
